FAERS Safety Report 5522863-9 (Version None)
Quarter: 2007Q4

REPORT INFORMATION
  Report Type: 
  Country: None (occurrence: None)
  Receive Date: 20071115
  Receipt Date: 20071031
  Transmission Date: 20080405
  Serious: Yes (Hospitalization)
  Sender: FDA-Public Use
  Company Number: 163514ISR

PATIENT
  Age: 54 Year
  Sex: Female

DRUGS (2)
  1. FLUOROURACIL [Suspect]
     Indication: BREAST CANCER
     Dosage: 1584 MG (CYCLICAL)
     Dates: start: 20070108, end: 20070610
  2. CISPLATINE MERCK [Suspect]
     Dosage: 150 MG
     Dates: start: 20070108, end: 20070610

REACTIONS (3)
  - DEAFNESS [None]
  - PARAESTHESIA [None]
  - RENAL IMPAIRMENT [None]
